FAERS Safety Report 18912657 (Version 1)
Quarter: 2021Q1

REPORT INFORMATION
  Report Type: Report from Study
  Country: CA (occurrence: CA)
  Receive Date: 20210218
  Receipt Date: 20210218
  Transmission Date: 20210420
  Serious: Yes (Other)
  Sender: FDA-Public Use
  Company Number: CA-BAYER-2021-061498

PATIENT
  Age: 59 Year
  Sex: Female

DRUGS (3)
  1. CORTISONE [Suspect]
     Active Substance: CORTISONE
     Indication: PRODUCT USED FOR UNKNOWN INDICATION
     Route: 065
  2. NAPROXEN. [Suspect]
     Active Substance: NAPROXEN
     Indication: PRODUCT USED FOR UNKNOWN INDICATION
     Route: 065
  3. OMALIZUMAB. [Suspect]
     Active Substance: OMALIZUMAB
     Indication: CHRONIC SPONTANEOUS URTICARIA
     Route: 058

REACTIONS (8)
  - Hypersensitivity [Unknown]
  - Urticaria [Unknown]
  - Arthralgia [Unknown]
  - Tendonitis [Unknown]
  - Condition aggravated [Unknown]
  - Drug ineffective [Unknown]
  - Chronic spontaneous urticaria [Unknown]
  - Lip swelling [Unknown]
